FAERS Safety Report 8313612-X (Version None)
Quarter: 2012Q2

REPORT INFORMATION
  Report Type: 
  Country: None (occurrence: None)
  Receive Date: 20120424
  Receipt Date: 20120410
  Transmission Date: 20120825
  Serious: Yes (Other)
  Sender: FDA-Public Use
  Company Number: 2012SP020201

PATIENT
  Age: 19 Year
  Sex: Female

DRUGS (1)
  1. NEXPLANON [Suspect]
     Dates: start: 20110705

REACTIONS (5)
  - MATERNAL EXPOSURE DURING PREGNANCY [None]
  - PREGNANCY WITH IMPLANT CONTRACEPTIVE [None]
  - ABORTION SPONTANEOUS COMPLETE [None]
  - IRRITABLE BOWEL SYNDROME [None]
  - VAGINAL HAEMORRHAGE [None]
